FAERS Safety Report 10050111 (Version 2)
Quarter: 2014Q2

REPORT INFORMATION
  Report Type: Spontaneous
  Country: FR (occurrence: FR)
  Receive Date: 20140401
  Receipt Date: 20140507
  Transmission Date: 20141212
  Serious: Yes (Other)
  Sender: FDA-Public Use
  Company Number: FR-CUBIST PHARMACEUTICAL, INC.-2014CBST000465

PATIENT
  Sex: 0

DRUGS (7)
  1. CUBICIN [Suspect]
     Indication: SEPTIC EMBOLUS
     Dosage: UNK, UNK, UNK
     Route: 065
  2. CUBICIN [Suspect]
     Indication: ANTIBIOTIC THERAPY
  3. CUBICIN [Suspect]
     Indication: OFF LABEL USE
  4. LINEZOLID [Concomitant]
     Indication: SEPTIC EMBOLUS
     Dosage: UNK, UNK, UNK
     Route: 065
  5. LINEZOLID [Concomitant]
     Indication: ANTIBIOTIC THERAPY
  6. RIFAMPIN [Concomitant]
     Indication: SEPTIC EMBOLUS
     Dosage: UNK, UNK, UNK
     Route: 065
  7. RIFAMPIN [Concomitant]
     Indication: ANTIBIOTIC THERAPY

REACTIONS (1)
  - Echinococciasis [Recovering/Resolving]
